FAERS Safety Report 5485887-6 (Version None)
Quarter: 2007Q4

REPORT INFORMATION
  Report Type: 
  Country: None (occurrence: None)
  Receive Date: 20071015
  Receipt Date: 20071015
  Transmission Date: 20080405
  Serious: Yes (Other)
  Sender: FDA-Public Use
  Company Number: JP-ROXANE LABORATORIES, INC-2007-DE-06041GD

PATIENT
  Age: 37 Year
  Sex: Female

DRUGS (5)
  1. TRANXENE [Suspect]
     Indication: EPILEPSY
  2. ZONISAMIDE [Suspect]
     Indication: EPILEPSY
  3. VALPROATE SODIUM [Suspect]
     Indication: EPILEPSY
  4. PHENYTOIN [Suspect]
     Indication: EPILEPSY
  5. POTASSIUM BROMIDE [Suspect]
     Indication: EPILEPSY

REACTIONS (1)
  - DRUG INEFFECTIVE [None]
